FAERS Safety Report 6153439 (Version 6)
Quarter: 2012Q4

REPORT INFORMATION
  Report Type: 
  Country: JP (occurrence: JP)
  Receive Date: 20061025
  Receipt Date: 20121011
  Transmission Date: 20130627
  Serious: Yes (Other)
  Sender: FDA-Public Use
  Company Number: PHBS2006JP16020

PATIENT
  Age: 53 None
  Sex: Male
  Weight: 55 kg

DRUGS (3)
  1. NEORAL [Suspect]
     Indication: PSORIASIS
     Dosage: 1.5 mg/kg, UNK
     Route: 048
     Dates: start: 20040901, end: 20060620
  2. NEORAL [Suspect]
     Dosage: 2.5 mg, UNK
     Route: 048
     Dates: start: 2008, end: 20100413
  3. ISONIAZID [Concomitant]
     Indication: PROPHYLAXIS
     Dosage: UNK UKN, UNK
     Route: 048

REACTIONS (21)
  - Uveitis [Recovered/Resolved]
  - Cataract [Recovered/Resolved]
  - Iridocyclitis [Recovered/Resolved]
  - Vision blurred [Unknown]
  - Intraocular pressure increased [Unknown]
  - Iris adhesions [Unknown]
  - Visual acuity reduced [Not Recovered/Not Resolved]
  - Eye inflammation [Recovering/Resolving]
  - Sick sinus syndrome [Unknown]
  - Psoriasis [Recovered/Resolved]
  - Rash [Recovering/Resolving]
  - Rash pustular [Unknown]
  - Skin disorder [Recovering/Resolving]
  - Upper respiratory tract infection [Recovered/Resolved]
  - Upper respiratory tract inflammation [Recovered/Resolved]
  - Hepatic function abnormal [Unknown]
  - Aspartate aminotransferase increased [Unknown]
  - Alanine aminotransferase increased [Unknown]
  - Arthralgia [Not Recovered/Not Resolved]
  - C-reactive protein increased [Unknown]
  - Red blood cell sedimentation rate increased [Unknown]
